FAERS Safety Report 7632895-2 (Version None)
Quarter: 2011Q3

REPORT INFORMATION
  Report Type: 
  Country: None (occurrence: None)
  Receive Date: 20110725
  Receipt Date: 20110713
  Transmission Date: 20111222
  Serious: Yes (Disabling)
  Sender: FDA-Public Use
  Company Number: PHHY2009GT26895

PATIENT
  Age: 37 Year
  Sex: Female

DRUGS (1)
  1. ZOLEDRONOC ACID [Suspect]
     Dosage: 5 MG,
     Route: 042
     Dates: start: 20090614

REACTIONS (6)
  - DIARRHOEA [None]
  - ABDOMINAL PAIN [None]
  - DIZZINESS [None]
  - IMPAIRED WORK ABILITY [None]
  - DEHYDRATION [None]
  - VOMITING [None]
